FAERS Safety Report 5386390-4 (Version None)
Quarter: 2007Q3

REPORT INFORMATION
  Report Type: 
  Country: None (occurrence: None)
  Receive Date: 20070710
  Receipt Date: 20070625
  Transmission Date: 20080115
  Serious: Yes (Other)
  Sender: FDA-Public Use
  Company Number: US020433

PATIENT
  Age: 5 Year
  Sex: Male

DRUGS (1)
  1. ACTIQ [Suspect]
     Dosage: 600 UG ONCE ORAL
     Route: 048
     Dates: start: 20060403, end: 20060403

REACTIONS (5)
  - ACCIDENTAL DRUG INTAKE BY CHILD [None]
  - DIZZINESS [None]
  - LETHARGY [None]
  - SOMNOLENCE [None]
  - VERTIGO [None]
